FAERS Safety Report 7624896-5 (Version None)
Quarter: 2011Q3

REPORT INFORMATION
  Report Type: 
  Country: None (occurrence: None)
  Receive Date: 20110720
  Receipt Date: 20110718
  Transmission Date: 20111222
  Serious: Yes (Hospitalization)
  Sender: FDA-Public Use
  Company Number: AU-MERCK-1106USA02936

PATIENT
  Sex: Male

DRUGS (4)
  1. VYTORIN [Suspect]
     Route: 048
  2. VYTORIN [Suspect]
     Indication: HYPERCHOLESTEROLAEMIA
     Route: 048
  3. VYTORIN [Suspect]
     Route: 048
  4. VYTORIN [Suspect]
     Indication: METABOLIC DISORDER
     Route: 048

REACTIONS (1)
  - CEREBRAL HAEMORRHAGE [None]
